FAERS Safety Report 19592650 (Version 1)
Quarter: 2021Q3

REPORT INFORMATION
  Report Type: Spontaneous
  Country: US (occurrence: US)
  Receive Date: 20210721
  Receipt Date: 20210721
  Transmission Date: 20211014
  Serious: No
  Sender: FDA-Public Use
  Company Number: None

PATIENT
  Age: 61 Year
  Sex: Male
  Weight: 121.56 kg

DRUGS (1)
  1. SILDENAFIL. [Suspect]
     Active Substance: SILDENAFIL
     Indication: ERECTILE DYSFUNCTION
     Dosage: ?          QUANTITY:20 MG MILLIGRAM(S);?
     Dates: start: 20210124, end: 20210124

REACTIONS (1)
  - Amnesia [None]

NARRATIVE: CASE EVENT DATE: 20210124
